FAERS Safety Report 8116288-X (Version None)
Quarter: 2011Q4

REPORT INFORMATION
  Report Type: 
  Country: None (occurrence: None)
  Receive Date: 20111227
  Receipt Date: 20111102
  Transmission Date: 20120403
  Serious: No
  Sender: FDA-Public Use
  Company Number: PHEH2011US008630

PATIENT
  Age: 47 Year
  Sex: Female

DRUGS (2)
  1. GILENYA [Suspect]
     Indication: MULTIPLE SCLEROSIS
     Dosage: 0.5 MG, QD, ORAL
     Route: 048
     Dates: start: 20111012
  2. ACETAMINOPHEN [Concomitant]

REACTIONS (5)
  - PYREXIA [None]
  - CHILLS [None]
  - HEADACHE [None]
  - PAIN [None]
  - MUSCLE SPASMS [None]
